FAERS Safety Report 5890487-X (Version None)
Quarter: 2008Q3

REPORT INFORMATION
  Report Type: 
  Country: None (occurrence: None)
  Receive Date: 20080922
  Receipt Date: 20080911
  Transmission Date: 20090109
  Serious: Yes (Other)
  Sender: FDA-Public Use
  Company Number: BR-BAYER-200818219LA

PATIENT
  Age: 39 Year
  Sex: Female

DRUGS (2)
  1. BETAFERON [Suspect]
     Indication: MULTIPLE SCLEROSIS
     Route: 058
     Dates: start: 20010101
  2. DESOGESTREL AND ETHINYL ESTRADIOL [Concomitant]
     Indication: DRUG USE FOR UNKNOWN INDICATION
     Route: 065

REACTIONS (20)
  - ANOREXIA [None]
  - ANXIETY [None]
  - ASPHYXIA [None]
  - DIZZINESS [None]
  - DYSPNOEA [None]
  - FATIGUE [None]
  - FEELING ABNORMAL [None]
  - INJECTION SITE MASS [None]
  - INJECTION SITE PAIN [None]
  - LOSS OF LIBIDO [None]
  - MALAISE [None]
  - MOOD ALTERED [None]
  - PAIN IN EXTREMITY [None]
  - PANIC ATTACK [None]
  - SLUGGISHNESS [None]
  - SOMNOLENCE [None]
  - STRESS [None]
  - VISION BLURRED [None]
  - VISUAL IMPAIRMENT [None]
  - WEIGHT INCREASED [None]
